FAERS Safety Report 6130423-4 (Version None)
Quarter: 2009Q1

REPORT INFORMATION
  Report Type: 
  Country: None (occurrence: None)
  Receive Date: 20090324
  Receipt Date: 20090312
  Transmission Date: 20090719
  Serious: Yes (Hospitalization, Other)
  Sender: FDA-Public Use
  Company Number: US-ELI_LILLY_AND_COMPANY-US200903003029

PATIENT
  Sex: Male

DRUGS (6)
  1. CYMBALTA [Suspect]
     Indication: DEPRESSION
     Dosage: 60 MG, DAILY (1/D)
     Route: 048
     Dates: start: 20070101, end: 20070101
  2. COUMADIN [Concomitant]
  3. LISINOPRIL [Concomitant]
  4. BETAPACE [Concomitant]
  5. COREG [Concomitant]
  6. INSULIN [Concomitant]

REACTIONS (5)
  - ABNORMAL BEHAVIOUR [None]
  - ANGER [None]
  - EPISTAXIS [None]
  - IMPLANTABLE DEFIBRILLATOR INSERTION [None]
  - THROMBOSIS [None]
